FAERS Safety Report 17101510 (Version 8)
Quarter: 2020Q3

REPORT INFORMATION
  Report Type: Spontaneous
  Country: FR (occurrence: FR)
  Receive Date: 20191202
  Receipt Date: 20200724
  Transmission Date: 20201102
  Serious: Yes (Hospitalization, Other)
  Sender: FDA-Public Use
  Company Number: FR-009507513-1911FRA012122

PATIENT
  Sex: Female
  Weight: 52 kg

DRUGS (1)
  1. NEXPLANON [Suspect]
     Active Substance: ETONOGESTREL
     Indication: CONTRACEPTION
     Dosage: 1 IMPLANT, LEFT ARM
     Route: 059
     Dates: start: 201802, end: 201912

REACTIONS (11)
  - Psychological trauma [Unknown]
  - Scar [Unknown]
  - Complication of device removal [Recovered/Resolved]
  - Hot flush [Unknown]
  - Fatigue [Unknown]
  - Alopecia [Unknown]
  - Device embolisation [Recovered/Resolved]
  - Musculoskeletal chest pain [Unknown]
  - Complication associated with device [Recovered/Resolved]
  - Metrorrhagia [Unknown]
  - Hyperhidrosis [Unknown]

NARRATIVE: CASE EVENT DATE: 2019
